FAERS Safety Report 8121828-0 (Version None)
Quarter: 2012Q1

REPORT INFORMATION
  Report Type: 
  Country: None (occurrence: None)
  Receive Date: 20120208
  Receipt Date: 20120203
  Transmission Date: 20120608
  Serious: Yes (Life-Threatening, Hospitalization, Other)
  Sender: FDA-Public Use
  Company Number: CA-PFIZER INC-2011286308

PATIENT
  Sex: Male
  Weight: 14 kg

DRUGS (4)
  1. PIPERACILLIN AND TAZOBACTAM [Suspect]
     Indication: PNEUMONIA
  2. PIPERACILLIN AND TAZOBACTAM [Suspect]
     Indication: EMPYEMA
     Dosage: 1.5 G, EVERY 8 HOURS
     Route: 042
     Dates: start: 20070329, end: 20070413
  3. CEFOTAXIME [Suspect]
     Indication: EMPYEMA
     Dosage: 1.2 G, EVERY 8 HOURS
     Route: 042
     Dates: start: 20070316, end: 20070329
  4. CEFOTAXIME [Suspect]
     Indication: PNEUMONIA

REACTIONS (5)
  - SHOCK [None]
  - RASH [None]
  - HEPATIC ENZYME INCREASED [None]
  - PYREXIA [None]
  - DISSEMINATED INTRAVASCULAR COAGULATION [None]
